FAERS Safety Report 9362042 (Version 2)
Quarter: 2013Q3

REPORT INFORMATION
  Report Type: Spontaneous
  Country: US (occurrence: US)
  Receive Date: 20130621
  Receipt Date: 20130715
  Transmission Date: 20140515
  Serious: Yes (Life-Threatening, Hospitalization, Disabling)
  Sender: FDA-Public Use
  Company Number: US-B.I. PHARMACEUTICALS,INC./RIDGEFIELD-2013-BI-17438BP

PATIENT
  Age: 82 Year
  Sex: Female
  Weight: 22.5 kg

DRUGS (7)
  1. PRADAXA [Suspect]
     Indication: CEREBROVASCULAR ACCIDENT PROPHYLAXIS
     Dosage: 75 MG
     Dates: end: 20130610
  2. PRADAXA [Suspect]
     Indication: ATRIAL FIBRILLATION
  3. RESTAL [Concomitant]
     Indication: SLEEP DISORDER
     Dosage: 30 MG
  4. NORVASC [Concomitant]
     Indication: PULMONARY HYPERTENSION
     Dosage: 4 MG
  5. ASPIRIN [Concomitant]
     Indication: CORONARY ARTERY DISEASE
     Dosage: 41 MG
  6. METOPROLOL [Concomitant]
     Indication: HYPERTENSION
     Dosage: 25 MG
  7. LEOTHYROXINE [Concomitant]
     Indication: HYPOTHYROIDISM
     Dosage: 75 MG

REACTIONS (1)
  - Ischaemic stroke [Recovered/Resolved with Sequelae]
